FAERS Safety Report 25541949 (Version 1)
Quarter: 2025Q3

REPORT INFORMATION
  Report Type: Spontaneous
  Country: US (occurrence: US)
  Receive Date: 20250711
  Receipt Date: 20250711
  Transmission Date: 20251021
  Serious: Yes (Life-Threatening, Hospitalization, Other)
  Sender: UNICHEM
  Company Number: US-UNICHEM LABORATORIES LIMITED-UNI-2025-US-002669

PATIENT

DRUGS (3)
  1. BACLOFEN [Interacting]
     Active Substance: BACLOFEN
     Indication: Back pain
  2. BACLOFEN [Interacting]
     Active Substance: BACLOFEN
     Route: 065
  3. IBUPROFEN [Interacting]
     Active Substance: IBUPROFEN
     Indication: Back pain
     Route: 065

REACTIONS (3)
  - Encephalopathy [Recovered/Resolved]
  - Drug interaction [Unknown]
  - Toxicity to various agents [Recovered/Resolved]
